FAERS Safety Report 12802523 (Version 1)
Quarter: 2016Q4

REPORT INFORMATION
  Report Type: Spontaneous
  Country: US (occurrence: US)
  Receive Date: 20161003
  Receipt Date: 20161003
  Transmission Date: 20170207
  Serious: Yes (Other)
  Sender: FDA-Public Use
  Company Number: US-INDIVIOR LIMITED-INDV-095203-2016

PATIENT

DRUGS (1)
  1. SUBOXONE [Suspect]
     Active Substance: BUPRENORPHINE HYDROCHLORIDE\NALOXONE HYDROCHLORIDE
     Indication: PAIN
     Dosage: 0.5 MG THREE TIMES A DAY
     Route: 060

REACTIONS (4)
  - Product preparation error [Unknown]
  - Off label use [Unknown]
  - Hospice care [Unknown]
  - Product use issue [Unknown]
